FAERS Safety Report 4265759-5 (Version None)
Quarter: 2004Q1

REPORT INFORMATION
  Report Type: 
  Country: None (occurrence: None)
  Receive Date: 20040107
  Receipt Date: 20040107
  Transmission Date: 20041129
  Serious: Yes (Hospitalization)
  Sender: FDA-Public Use
  Company Number: None

PATIENT
  Sex: Male
  Weight: 89.8122 kg

DRUGS (9)
  1. CISPLATIN [Suspect]
     Indication: ADENOCARCINOMA
     Dosage: 30MG/M2 DAYS 1 AND INTRAVENOUS
     Route: 042
     Dates: start: 20031202, end: 20031209
  2. SYNTHROID [Concomitant]
  3. ASPIRIN [Concomitant]
  4. NEXIUM [Concomitant]
  5. FOLATE [Concomitant]
  6. MEGESTROL [Concomitant]
  7. TORECAN [Concomitant]
  8. MG [Concomitant]
  9. IRINOTECAN [Suspect]
     Dosage: 65MG/M DAYS 1 AND IV
     Route: 042

REACTIONS (12)
  - CYANOSIS [None]
  - DIARRHOEA [None]
  - DYSPNOEA [None]
  - HEART RATE DECREASED [None]
  - HYPERHIDROSIS [None]
  - OCULAR ICTERUS [None]
  - OEDEMA [None]
  - OEDEMA PERIPHERAL [None]
  - PAIN IN EXTREMITY [None]
  - PULMONARY EMBOLISM [None]
  - RALES [None]
  - RESPIRATORY DISTRESS [None]
